FAERS Safety Report 5493874-7 (Version None)
Quarter: 2007Q4

REPORT INFORMATION
  Report Type: 
  Country: None (occurrence: None)
  Receive Date: 20071023
  Receipt Date: 20071011
  Transmission Date: 20080405
  Serious: Yes (Other)
  Sender: FDA-Public Use
  Company Number: US-PFIZER INC-2007085580

PATIENT
  Sex: Female
  Weight: 83 kg

DRUGS (4)
  1. LYRICA [Suspect]
     Indication: FIBROMYALGIA
     Dates: start: 20070901
  2. SYNTHROID [Concomitant]
     Indication: HYPERTHYROIDISM
  3. PAXIL [Concomitant]
     Indication: DEPRESSION
  4. WELLBUTRIN [Concomitant]
     Indication: DEPRESSION

REACTIONS (5)
  - BURNING SENSATION [None]
  - FIBROMYALGIA [None]
  - HYPERAESTHESIA [None]
  - MUSCLE SPASMS [None]
  - PAIN [None]
